FAERS Safety Report 22193313 (Version 6)
Quarter: 2024Q2

REPORT INFORMATION
  Report Type: Spontaneous
  Country: US (occurrence: US)
  Receive Date: 20230410
  Receipt Date: 20240403
  Transmission Date: 20240716
  Serious: No
  Sender: FDA-Public Use
  Company Number: US-PFIZER INC-PV202300064465

PATIENT
  Age: 76 Year
  Sex: Male

DRUGS (2)
  1. LORBRENA [Suspect]
     Active Substance: LORLATINIB
     Indication: Lung neoplasm malignant
     Dosage: 75 MG, DAILY
     Route: 048
     Dates: start: 20220616
  2. LORBRENA [Suspect]
     Active Substance: LORLATINIB
     Dosage: 50 MG, DAILY (TAKE 2 TABLETS BY MOUTH DAILY)
     Route: 048

REACTIONS (2)
  - COVID-19 [Unknown]
  - Memory impairment [Unknown]
